FAERS Safety Report 20654731 (Version 1)
Quarter: 2022Q1

REPORT INFORMATION
  Report Type: Spontaneous
  Country: US (occurrence: None)
  Receive Date: 20220329
  Receipt Date: 20220329
  Transmission Date: 20220423
  Serious: No
  Sender: FDA-Public Use
  Company Number: None

PATIENT
  Age: 59 Year
  Sex: Male

DRUGS (1)
  1. POMALYST [Suspect]
     Active Substance: POMALIDOMIDE
     Indication: Plasma cell myeloma
     Dosage: FREQUENCY : DAILY;?
     Route: 048
     Dates: start: 20220224

REACTIONS (6)
  - Fatigue [None]
  - Inappropriate schedule of product administration [None]
  - Rash [None]
  - Swelling face [None]
  - Erythema [None]
  - Therapy change [None]

NARRATIVE: CASE EVENT DATE: 20220327
